FAERS Safety Report 11061622 (Version 3)
Quarter: 2015Q2

REPORT INFORMATION
  Report Type: Spontaneous
  Country: US (occurrence: None)
  Receive Date: 20150421
  Receipt Date: 20150514
  Transmission Date: 20150821
  Serious: Yes (Other)
  Sender: FDA-Public Use
  Company Number: VIT-2015-00865

PATIENT
  Age: 45 Year
  Sex: Male
  Weight: 84.5 kg

DRUGS (1)
  1. VELPHORO [Suspect]
     Active Substance: FERRIC OXYHYDROXIDE
     Indication: HYPERPHOSPHATAEMIA
     Dates: start: 201410, end: 20141216

REACTIONS (2)
  - Eosinophil count increased [None]
  - Hypersensitivity [None]

NARRATIVE: CASE EVENT DATE: 2014
